FAERS Safety Report 8823224 (Version 1)
Quarter: 2012Q4

REPORT INFORMATION
  Report Type: 
  Country: GB (occurrence: GB)
  Receive Date: 20121003
  Receipt Date: 20121003
  Transmission Date: 20130627
  Serious: Yes (Hospitalization)
  Sender: FDA-Public Use
  Company Number: GB-COVIDIEN/TYCO HEALTHCARE/MALLINCKRODT-T201203485

PATIENT
  Age: 77 Year
  Sex: Female

DRUGS (1)
  1. FENTANYL TRANSDERMAL SYSTEM [Suspect]
     Indication: BACK PAIN
     Dosage: 50 ug/hr, UNK
     Route: 062

REACTIONS (5)
  - Burns third degree [Recovered/Resolved]
  - Renal failure acute [Recovered/Resolved]
  - Electrolyte imbalance [Recovered/Resolved]
  - Dehydration [Recovered/Resolved]
  - Overdose [Recovered/Resolved]
